FAERS Safety Report 13652467 (Version 3)
Quarter: 2019Q2

REPORT INFORMATION
  Report Type: Report from Study
  Country: CA (occurrence: CA)
  Receive Date: 20170614
  Receipt Date: 20190530
  Transmission Date: 20190711
  Serious: Yes (Other)
  Sender: FDA-Public Use
  Company Number: CA-ACTELION-A-US2017-155128

PATIENT
  Age: 67 Year
  Sex: Male

DRUGS (13)
  1. TRACLEER [Suspect]
     Active Substance: BOSENTAN
     Dosage: 125 MG, BID
     Route: 048
     Dates: start: 20160823
  2. SPIRONOLACTONE. [Concomitant]
     Active Substance: SPIRONOLACTONE
  3. COVERSYL [Concomitant]
     Active Substance: PERINDOPRIL
  4. SPIRIVA [Concomitant]
     Active Substance: TIOTROPIUM BROMIDE MONOHYDRATE
  5. FUROSEMIDE. [Concomitant]
     Active Substance: FUROSEMIDE
  6. METFORMIN [Concomitant]
     Active Substance: METFORMIN HYDROCHLORIDE
  7. EZETIMIBE. [Concomitant]
     Active Substance: EZETIMIBE
  8. ATORVASTATIN [Concomitant]
     Active Substance: ATORVASTATIN
  9. SYMBICORT [Concomitant]
     Active Substance: BUDESONIDE\FORMOTEROL FUMARATE DIHYDRATE
  10. OXYGEN. [Concomitant]
     Active Substance: OXYGEN
  11. ADCIRCA [Suspect]
     Active Substance: TADALAFIL
     Indication: PRODUCT USED FOR UNKNOWN INDICATION
     Route: 065
  12. IRON [Concomitant]
     Active Substance: IRON
  13. TRACLEER [Suspect]
     Active Substance: BOSENTAN
     Indication: PULMONARY ARTERIAL HYPERTENSION
     Dosage: 125 MG, BID
     Route: 048
     Dates: start: 20170823

REACTIONS (24)
  - Visual impairment [Unknown]
  - Dizziness [Unknown]
  - Nerve injury [Unknown]
  - Blindness [Unknown]
  - Head injury [Unknown]
  - Urticaria papular [Not Recovered/Not Resolved]
  - Eye operation [Unknown]
  - Fatigue [Unknown]
  - Eye discharge [Unknown]
  - Vitreous floaters [Unknown]
  - Hypoaesthesia [Unknown]
  - Retinal injury [Unknown]
  - Biopsy [Unknown]
  - Lethargy [Unknown]
  - Pruritus [Not Recovered/Not Resolved]
  - Multiple allergies [Unknown]
  - Hypertension [Unknown]
  - Vision blurred [Unknown]
  - Anaemia [Not Recovered/Not Resolved]
  - Intermittent claudication [Unknown]
  - Sinus operation [Unknown]
  - Stent placement [Unknown]
  - Fall [Unknown]
  - Transfusion [Not Recovered/Not Resolved]

NARRATIVE: CASE EVENT DATE: 20171120
